FAERS Safety Report 11540088 (Version 17)
Quarter: 2016Q4

REPORT INFORMATION
  Report Type: Report from Study
  Country: US (occurrence: US)
  Receive Date: 20150923
  Receipt Date: 20161220
  Transmission Date: 20170206
  Serious: Yes (Hospitalization, Other)
  Sender: FDA-Public Use
  Company Number: US-SA-2015SA142082

PATIENT
  Age: 48 Year
  Sex: Male

DRUGS (6)
  1. FABRAZYME [Suspect]
     Active Substance: AGALSIDASE BETA
     Indication: FABRY^S DISEASE
     Dosage: FREQUENCY: Q2
     Route: 041
     Dates: start: 20151116, end: 201604
  2. FABRAZYME [Suspect]
     Active Substance: AGALSIDASE BETA
     Indication: FABRY^S DISEASE
     Dosage: FREQUENCY-Q2
     Route: 041
     Dates: start: 200309, end: 20150902
  3. SOLU-CORTEF [Concomitant]
     Active Substance: HYDROCORTISONE SODIUM SUCCINATE
     Indication: PREMEDICATION
     Dates: start: 201504
  4. FABRAZYME [Suspect]
     Active Substance: AGALSIDASE BETA
     Indication: FABRY^S DISEASE
     Route: 041
     Dates: start: 1990
  5. FABRAZYME [Suspect]
     Active Substance: AGALSIDASE BETA
     Indication: FABRY^S DISEASE
     Dosage: FREQUENCY: Q2
     Route: 041
     Dates: start: 2016, end: 20160504
  6. FABRAZYME [Suspect]
     Active Substance: AGALSIDASE BETA
     Indication: FABRY^S DISEASE
     Dosage: FREQUENCY: Q2
     Route: 041
     Dates: start: 2016

REACTIONS (39)
  - Impaired gastric emptying [Recovered/Resolved]
  - Abdominal pain [Recovered/Resolved]
  - Clostridium difficile infection [Recovering/Resolving]
  - Nausea [Recovered/Resolved]
  - Fear of death [Unknown]
  - Lethargy [Recovered/Resolved]
  - Atrial fibrillation [Unknown]
  - Catheter placement [Unknown]
  - Gastrointestinal disorder [Recovered/Resolved]
  - Malaise [Not Recovered/Not Resolved]
  - Dental caries [Unknown]
  - Abdominal discomfort [Not Recovered/Not Resolved]
  - Chills [Recovered/Resolved]
  - Vomiting [Recovered/Resolved]
  - Pain [Recovered/Resolved]
  - Malaise [Not Recovered/Not Resolved]
  - Weight gain poor [Not Recovered/Not Resolved]
  - Gastrointestinal motility disorder [Not Recovered/Not Resolved]
  - Abdominal pain [Recovered/Resolved]
  - Vomiting [Not Recovered/Not Resolved]
  - Nausea [Recovered/Resolved]
  - Pneumonia [Unknown]
  - Thrombosis [Unknown]
  - Fear [Unknown]
  - Vomiting [Recovered/Resolved]
  - Abdominal pain upper [Unknown]
  - Fatigue [Recovered/Resolved]
  - Cerebrovascular accident [Unknown]
  - Gastric cancer [Unknown]
  - Left ventricular hypertrophy [Not Recovered/Not Resolved]
  - Discomfort [Recovered/Resolved]
  - Hyperhidrosis [Recovered/Resolved]
  - Tooth loss [Not Recovered/Not Resolved]
  - Muscle spasms [Recovered/Resolved]
  - Nasopharyngitis [Recovering/Resolving]
  - Muscular weakness [Recovering/Resolving]
  - Chills [Recovered/Resolved]
  - Feeling abnormal [Recovered/Resolved]
  - Weight decreased [Unknown]

NARRATIVE: CASE EVENT DATE: 201509
